FAERS Safety Report 11878131 (Version 1)
Quarter: 2015Q4

REPORT INFORMATION
  Report Type: Spontaneous
  Country: CH (occurrence: CH)
  Receive Date: 20151230
  Receipt Date: 20151230
  Transmission Date: 20160305
  Serious: Yes (Other)
  Sender: FDA-Public Use
  Company Number: CH-ROCHE-1684404

PATIENT
  Age: 34 Week
  Sex: Female

DRUGS (1)
  1. RANIBIZUMAB [Suspect]
     Active Substance: RANIBIZUMAB
     Indication: RETINOPATHY OF PREMATURITY
     Route: 050

REACTIONS (3)
  - Intraocular pressure increased [Unknown]
  - Product use issue [Unknown]
  - Retinal vascular disorder [Unknown]
